FAERS Safety Report 6171282-3 (Version None)
Quarter: 2009Q2

REPORT INFORMATION
  Report Type: 
  Country: None (occurrence: None)
  Receive Date: 20090427
  Receipt Date: 20090417
  Transmission Date: 20091009
  Serious: Yes (Death)
  Sender: FDA-Public Use
  Company Number: 2009-195180-NL

PATIENT
  Age: 64 Year
  Sex: Female

DRUGS (8)
  1. MIRTAZAPINE [Suspect]
     Dosage: 15 MG QD ; 30 MG QD ORAL
     Route: 048
     Dates: start: 20081111, end: 20081111
  2. MIRTAZAPINE [Suspect]
     Dosage: 15 MG QD ; 30 MG QD ORAL
     Route: 048
     Dates: start: 20081112
  3. TRAZODONE HCL [Suspect]
     Dosage: 200 MG QD ; 150 MG QD ; 50 MG QD ORAL
     Route: 048
     Dates: start: 20080701, end: 20081109
  4. TRAZODONE HCL [Suspect]
     Dosage: 200 MG QD ; 150 MG QD ; 50 MG QD ORAL
     Route: 048
     Dates: start: 20081110, end: 20081111
  5. TRAZODONE HCL [Suspect]
     Dosage: 200 MG QD ; 150 MG QD ; 50 MG QD ORAL
     Route: 048
     Dates: start: 20081112, end: 20081112
  6. TRIAZOLAM [Suspect]
     Dates: start: 20081104
  7. ALPRAZOLAM [Suspect]
     Dosage: 1 MG QD ; 1.25 MG QD ORAL
     Route: 048
     Dates: start: 20081001, end: 20081103
  8. ALPRAZOLAM [Suspect]
     Dosage: 1 MG QD ; 1.25 MG QD ORAL
     Route: 048
     Dates: start: 20081104

REACTIONS (2)
  - COMPLETED SUICIDE [None]
  - DROWNING [None]
